FAERS Safety Report 23193770 (Version 1)
Quarter: 2023Q4

REPORT INFORMATION
  Report Type: Report from Study
  Country: US (occurrence: US)
  Receive Date: 20231116
  Receipt Date: 20231116
  Transmission Date: 20240110
  Serious: Yes (Other)
  Sender: FDA-Public Use
  Company Number: US-ABBVIE-5496400

PATIENT
  Sex: Female

DRUGS (3)
  1. SKYRIZI [Suspect]
     Active Substance: RISANKIZUMAB-RZAA
     Indication: Psoriasis
     Dosage: TIME INTERVAL: TOTAL: DOSAGE: 150 MG/ML STRENGTH :150MG/ML?WEEK 0
     Route: 058
     Dates: start: 20230522, end: 20230522
  2. SKYRIZI [Suspect]
     Active Substance: RISANKIZUMAB-RZAA
     Dosage: TIME INTERVAL: TOTAL: DOSAGE: 150 MG/ML STRENGTH :150MG/ML?WEEK 4
     Route: 058
     Dates: start: 20230619, end: 20230619
  3. SKYRIZI [Suspect]
     Active Substance: RISANKIZUMAB-RZAA
     Dosage: DOSAGE: 150 MG/ML STRENGTH :150MG/ML
     Route: 058
     Dates: start: 20231114

REACTIONS (2)
  - Surgery [Recovering/Resolving]
  - Psoriasis [Not Recovered/Not Resolved]

NARRATIVE: CASE EVENT DATE: 20230101
